FAERS Safety Report 6853226-1 (Version None)
Quarter: 2010Q3

REPORT INFORMATION
  Report Type: 
  Country: None (occurrence: None)
  Receive Date: 20100717
  Receipt Date: 20071227
  Transmission Date: 20110219
  Serious: No
  Sender: FDA-Public Use
  Company Number: US-PFIZER INC-2007100897

PATIENT
  Sex: Male

DRUGS (2)
  1. CHANTIX [Suspect]
     Dates: start: 20071101
  2. SPIRIVA [Concomitant]

REACTIONS (5)
  - ABNORMAL DREAMS [None]
  - CONSTIPATION [None]
  - DRUG INTOLERANCE [None]
  - FLATULENCE [None]
  - SLEEP DISORDER [None]
